FAERS Safety Report 5614697-1 (Version None)
Quarter: 2008Q1

REPORT INFORMATION
  Report Type: 
  Country: None (occurrence: None)
  Receive Date: 20080131
  Receipt Date: 20080124
  Transmission Date: 20080703
  Serious: Yes (Hospitalization)
  Sender: FDA-Public Use
  Company Number: 2008SP000032

PATIENT
  Age: 56 Year
  Sex: Male

DRUGS (4)
  1. PEG-INTRON [Suspect]
     Indication: HEPATITIS C
     Dosage: SC
     Route: 058
     Dates: start: 20070813
  2. RIBASPHERE [Suspect]
     Indication: HEPATITIS C
     Dosage: PO
     Route: 048
     Dates: start: 20070813
  3. PAXIL [Concomitant]
  4. LAMICTAL [Suspect]
     Indication: DEPRESSION

REACTIONS (8)
  - CONDITION AGGRAVATED [None]
  - CONFUSIONAL STATE [None]
  - DYSSTASIA [None]
  - FALL [None]
  - GLOBAL AMNESIA [None]
  - INFLUENZA LIKE ILLNESS [None]
  - THIRST [None]
  - TREMOR [None]
